FAERS Safety Report 6371431-8 (Version None)
Quarter: 2009Q3

REPORT INFORMATION
  Report Type: 
  Country: None (occurrence: None)
  Receive Date: 20090923
  Receipt Date: 20070703
  Transmission Date: 20100115
  Serious: Yes (Other)
  Sender: FDA-Public Use
  Company Number: US-ASTRAZENECA-2007UW09527

PATIENT
  Age: 5608 Day
  Sex: Male
  Weight: 83.9 kg

DRUGS (13)
  1. SEROQUEL [Suspect]
     Indication: BIPOLAR DISORDER
     Route: 048
     Dates: start: 20010101, end: 20060101
  2. SEROQUEL [Suspect]
     Indication: INSOMNIA
     Route: 048
     Dates: start: 20010101, end: 20060101
  3. SEROQUEL [Suspect]
     Route: 048
     Dates: start: 20040813, end: 20060816
  4. SEROQUEL [Suspect]
     Route: 048
     Dates: start: 20040813, end: 20060816
  5. SEROQUEL [Suspect]
     Dosage: 25 - 200 MG AT BEDTIME
     Route: 048
     Dates: start: 20050901
  6. SEROQUEL [Suspect]
     Dosage: 25 - 200 MG AT BEDTIME
     Route: 048
     Dates: start: 20050901
  7. TRILEPTAL [Concomitant]
     Indication: AFFECTIVE DISORDER
     Dosage: 600 MG AT MORNINING AND NIGHT
     Dates: start: 20051117
  8. WELLBUTRIN XL [Concomitant]
     Indication: DEPRESSION
     Dates: start: 20051117, end: 20060516
  9. DEXADRINE [Concomitant]
     Indication: ATTENTION DEFICIT/HYPERACTIVITY DISORDER
     Dosage: 20 MG IN MORNING AND 20 MG AT NOON
     Dates: start: 20051107
  10. INSULIN [Concomitant]
     Indication: TYPE 1 DIABETES MELLITUS
     Dates: start: 20051201
  11. METFORMIN HCL [Concomitant]
     Dates: start: 20060516
  12. CONCERTA [Concomitant]
  13. DEPAKOTE [Concomitant]

REACTIONS (2)
  - DIABETES MELLITUS INADEQUATE CONTROL [None]
  - TYPE 1 DIABETES MELLITUS [None]
